FAERS Safety Report 10719654 (Version 1)
Quarter: 2015Q1

REPORT INFORMATION
  Report Type: Spontaneous
  Country: US (occurrence: US)
  Receive Date: 20150119
  Receipt Date: 20150119
  Transmission Date: 20150721
  Serious: No
  Sender: FDA-Public Use
  Company Number: US-UNITED THERAPEUTICS-UTC-046131

PATIENT
  Sex: Female
  Weight: 58.96 kg

DRUGS (4)
  1. TYVASO [Suspect]
     Active Substance: TREPROSTINIL
     Indication: COR PULMONALE CHRONIC
     Dosage: 18-54 MICROGRAMS, QID
     Dates: start: 20131209
  2. WARFARIN [Concomitant]
     Active Substance: WARFARIN
  3. REVATIO [Concomitant]
     Active Substance: SILDENAFIL CITRATE
  4. TRACLEER [Concomitant]
     Active Substance: BOSENTAN\BOSENTAN MONOHYDRATE

REACTIONS (6)
  - Chest pain [Unknown]
  - Malaise [Unknown]
  - Mental disorder [Unknown]
  - Drug dose omission [Unknown]
  - Dyspnoea [Unknown]
  - Headache [Not Recovered/Not Resolved]
